FAERS Safety Report 17063578 (Version 3)
Quarter: 2020Q1

REPORT INFORMATION
  Report Type: Spontaneous
  Country: DE (occurrence: DE)
  Receive Date: 20191122
  Receipt Date: 20200311
  Transmission Date: 20200409
  Serious: Yes (Hospitalization, Other)
  Sender: FDA-Public Use
  Company Number: DE-EISAI MEDICAL RESEARCH-EC-2019-063751

PATIENT
  Age: 52 Year
  Sex: Male
  Weight: 115 kg

DRUGS (3)
  1. LENVIMA [Suspect]
     Active Substance: LENVATINIB
     Indication: HEPATOCELLULAR CARCINOMA
     Route: 048
     Dates: start: 201810, end: 201908
  2. LENVIMA [Suspect]
     Active Substance: LENVATINIB
     Route: 048
     Dates: start: 201909
  3. LENVIMA [Suspect]
     Active Substance: LENVATINIB
     Dosage: LENVIMA DOSAGE PAUSED IN BETWEEN OR CONTINUED WITH A REDUCED DOSAGE OF 8MG OR 10MG
     Route: 048

REACTIONS (7)
  - Blood pressure increased [Unknown]
  - Diarrhoea [Recovering/Resolving]
  - Pyrexia [Unknown]
  - C-reactive protein increased [Unknown]
  - General physical health deterioration [Unknown]
  - Cholangitis [Unknown]
  - Weight decreased [Recovering/Resolving]

NARRATIVE: CASE EVENT DATE: 201904
